FAERS Safety Report 26187462 (Version 1)
Quarter: 2025Q4

REPORT INFORMATION
  Report Type: Spontaneous
  Country: US (occurrence: None)
  Receive Date: 20251222
  Receipt Date: 20251222
  Transmission Date: 20260117
  Serious: No
  Sender: FDA-CTU
  Company Number: None

PATIENT
  Age: 61 Year
  Sex: Male
  Weight: 81 kg

DRUGS (1)
  1. COSMETICS [Suspect]
     Active Substance: COSMETICS
     Indication: Product used for unknown indication
     Dosage: OTHER STRENGTH : 1 UNIT;
     Dates: start: 20151201, end: 20251212

REACTIONS (1)
  - Product information content complaint [None]

NARRATIVE: CASE EVENT DATE: 20251201
